FAERS Safety Report 7524705-9 (Version None)
Quarter: 2011Q2

REPORT INFORMATION
  Report Type: 
  Country: None (occurrence: None)
  Receive Date: 20110525
  Receipt Date: 20110510
  Transmission Date: 20111010
  Serious: Yes (Other)
  Sender: FDA-Public Use
  Company Number: 2011MA005737

PATIENT
  Age: 77 Year
  Sex: Male

DRUGS (3)
  1. BETAMETHASONE DIPROPIONATE OINTMENT [Suspect]
     Indication: PLASMACYTOSIS
  2. METHOTREXATE [Concomitant]
  3. TACROLIUMS [Concomitant]

REACTIONS (2)
  - LIP NEOPLASM MALIGNANT STAGE UNSPECIFIED [None]
  - METASTASES TO LYMPH NODES [None]
